FAERS Safety Report 8115273-1 (Version None)
Quarter: 2012Q1

REPORT INFORMATION
  Report Type: 
  Country: None (occurrence: None)
  Receive Date: 20120206
  Receipt Date: 20120131
  Transmission Date: 20120608
  Serious: Yes (Death, Hospitalization)
  Sender: FDA-Public Use
  Company Number: US-CELGENEUS-163-21880-11112148

PATIENT
  Sex: Male

DRUGS (10)
  1. METFORMIN HCL [Concomitant]
     Route: 065
  2. DEXAMETHASONE [Concomitant]
     Route: 065
  3. HUMALOG [Concomitant]
     Route: 065
  4. PROSCAR [Concomitant]
     Route: 065
  5. REVLIMID [Suspect]
  6. LANTUS [Concomitant]
     Route: 065
  7. PREVACID [Concomitant]
     Route: 065
  8. VITAMIN B1 TAB [Concomitant]
     Route: 065
  9. REVLIMID [Suspect]
     Indication: MYELODYSPLASTIC SYNDROME
     Dosage: 5 MILLIGRAM
     Route: 048
     Dates: start: 20110807
  10. VITAMIN B-12 [Concomitant]
     Route: 065

REACTIONS (3)
  - LYMPHADENOPATHY [None]
  - ACUTE MYELOID LEUKAEMIA [None]
  - STOMATITIS [None]
